FAERS Safety Report 21443206 (Version 2)
Quarter: 2022Q4

REPORT INFORMATION
  Report Type: Report from Study
  Country: CO (occurrence: CO)
  Receive Date: 20221012
  Receipt Date: 20221222
  Transmission Date: 20230112
  Serious: Yes (Other)
  Sender: FDA-Public Use
  Company Number: CO-NOVARTISPH-NVSC2022CO227812

PATIENT
  Sex: Female

DRUGS (3)
  1. TASIGNA [Suspect]
     Active Substance: NILOTINIB
     Indication: Chronic myeloid leukaemia
     Dosage: 300 MG, Q12H
     Route: 048
     Dates: start: 20211001
  2. TASIGNA [Suspect]
     Active Substance: NILOTINIB
     Dosage: (TWO DOSAGE FORM IN THE MORNING AND TWO AT NIGHT), QID
     Route: 048
  3. TASIGNA [Suspect]
     Active Substance: NILOTINIB
     Dosage: 400 MG, Q12H (STRENGTH: ONE OF 200 MG)
     Route: 048

REACTIONS (19)
  - Chronic myeloid leukaemia recurrent [Unknown]
  - Pollakiuria [Unknown]
  - Vomiting [Unknown]
  - Haemoglobin increased [Unknown]
  - Feeling abnormal [Unknown]
  - Somnolence [Recovering/Resolving]
  - Skin disorder [Unknown]
  - Vulvovaginal dryness [Unknown]
  - Leiomyoma [Unknown]
  - Amenorrhoea [Unknown]
  - Fear [Unknown]
  - Influenza [Unknown]
  - Oropharyngeal pain [Unknown]
  - Pyrexia [Unknown]
  - Alopecia [Recovered/Resolved]
  - Constipation [Unknown]
  - Pain [Recovering/Resolving]
  - Fatigue [Unknown]
  - Arthralgia [Unknown]
